FAERS Safety Report 24406611 (Version 1)
Quarter: 2024Q4

REPORT INFORMATION
  Report Type: Spontaneous
  Country: JP (occurrence: JP)
  Receive Date: 20241007
  Receipt Date: 20241007
  Transmission Date: 20250114
  Serious: Yes (Hospitalization, Other)
  Sender: ELI LILLY AND CO
  Company Number: JP-ELI_LILLY_AND_COMPANY-JP202409018279

PATIENT
  Age: 9 Year
  Sex: Female

DRUGS (2)
  1. INSULIN HUMAN [Suspect]
     Active Substance: INSULIN HUMAN
     Indication: Type 1 diabetes mellitus
     Route: 058
  2. GLUCOSE 20% BRAUN [Concomitant]
     Indication: Hypoglycaemia

REACTIONS (5)
  - Hallucination, visual [Recovered/Resolved]
  - Myoclonus [Recovered/Resolved]
  - Restlessness [Recovered/Resolved]
  - Hypoglycaemia [Recovered/Resolved]
  - Extra dose administered [Unknown]
